FAERS Safety Report 6815070-0 (Version None)
Quarter: 2010Q2

REPORT INFORMATION
  Report Type: 
  Country: None (occurrence: None)
  Receive Date: 20100630
  Receipt Date: 20100630
  Transmission Date: 20101027
  Serious: Yes (Death)
  Sender: FDA-Public Use
  Company Number: None

PATIENT
  Sex: Female
  Weight: 89.8122 kg

DRUGS (1)
  1. HYDROXYCHLOROQUINE 200 MG WATSON [Suspect]
     Indication: SYSTEMIC LUPUS ERYTHEMATOSUS
     Dosage: 200 MG TWICE DAILY PO
     Route: 048
     Dates: start: 20000101, end: 20100207

REACTIONS (1)
  - DRUG TOXICITY [None]
